FAERS Safety Report 20646480 (Version 3)
Quarter: 2023Q1

REPORT INFORMATION
  Report Type: Spontaneous
  Country: US (occurrence: US)
  Receive Date: 20220329
  Receipt Date: 20230124
  Transmission Date: 20230417
  Serious: Yes (Other)
  Sender: FDA-Public Use
  Company Number: US-GILEAD-2022-0575220

PATIENT
  Age: 61 Year
  Sex: Male
  Weight: 102 kg

DRUGS (21)
  1. TRUVADA [Suspect]
     Active Substance: EMTRICITABINE\TENOFOVIR DISOPROXIL FUMARATE
     Indication: HIV infection
     Dosage: UNK
     Route: 048
     Dates: start: 2018
  2. TRUVADA [Suspect]
     Active Substance: EMTRICITABINE\TENOFOVIR DISOPROXIL FUMARATE
     Dosage: UNK
     Route: 048
     Dates: start: 2015, end: 201908
  3. TYLENOL [Concomitant]
     Active Substance: ACETAMINOPHEN
  4. DILTIAZEM [Concomitant]
     Active Substance: DILTIAZEM
  5. CLONIDINE [Concomitant]
     Active Substance: CLONIDINE
  6. SIMVASTATIN [Concomitant]
     Active Substance: SIMVASTATIN
  7. FERROUS SULFATE [Concomitant]
     Active Substance: FERROUS SULFATE
  8. METHYLPHENIDATE [Concomitant]
     Active Substance: METHYLPHENIDATE
  9. TADALAFIL [Concomitant]
     Active Substance: TADALAFIL
  10. PANTOPRAZOLE [Concomitant]
     Active Substance: PANTOPRAZOLE
  11. TRAZODONE [Concomitant]
     Active Substance: TRAZODONE HYDROCHLORIDE
  12. ALLOPURINOL [Concomitant]
     Active Substance: ALLOPURINOL
  13. ALPRAZOLAM [Concomitant]
     Active Substance: ALPRAZOLAM
  14. METFORMIN [Concomitant]
     Active Substance: METFORMIN HYDROCHLORIDE
  15. FOLIC ACID [Concomitant]
     Active Substance: FOLIC ACID
  16. VRAYLAR [Concomitant]
     Active Substance: CARIPRAZINE
  17. FUROSEMIDE [Concomitant]
     Active Substance: FUROSEMIDE
  18. LAMOTRIGINE [Concomitant]
     Active Substance: LAMOTRIGINE
  19. FLUVOXAMINE [Concomitant]
     Active Substance: FLUVOXAMINE
  20. POTASSIUM CHLORIDE [Concomitant]
     Active Substance: POTASSIUM CHLORIDE
  21. SILDENAFIL [Concomitant]
     Active Substance: SILDENAFIL

REACTIONS (9)
  - Renal failure [Unknown]
  - Acute kidney injury [Not Recovered/Not Resolved]
  - Hyperkalaemia [Recovered/Resolved]
  - Pain [Not Recovered/Not Resolved]
  - Anxiety [Not Recovered/Not Resolved]
  - Emotional distress [Not Recovered/Not Resolved]
  - Anhedonia [Not Recovered/Not Resolved]
  - Metabolic acidosis [Recovered/Resolved]
  - Hyperphosphataemia [Recovered/Resolved]

NARRATIVE: CASE EVENT DATE: 20190401
